FAERS Safety Report 8779838 (Version 1)
Quarter: 2012Q4

REPORT INFORMATION
  Report Type: Spontaneous
  Country: DK (occurrence: None)
  Receive Date: 20120828
  Receipt Date: 20120828
  Transmission Date: 20130627
  Serious: Yes (Hospitalization)
  Sender: FDA-Public Use
  Company Number: 2012MA010442

PATIENT
  Age: 26 Year
  Sex: Female

DRUGS (5)
  1. DOXYCYCLINE HYCLATE [Suspect]
     Route: 048
     Dates: start: 20120728
  2. FLUOXETINE [Concomitant]
  3. FORTISIP [Concomitant]
  4. ERYTHROMYCIN [Concomitant]
  5. PHENOXYMETHYLPENICILLIN [Concomitant]

REACTIONS (4)
  - Confusional state [None]
  - Malaise [None]
  - Cognitive disorder [None]
  - Treatment noncompliance [None]
